FAERS Safety Report 4765568-4 (Version None)
Quarter: 2005Q3

REPORT INFORMATION
  Report Type: 
  Country: None (occurrence: None)
  Receive Date: 20050906
  Receipt Date: 20050826
  Transmission Date: 20060218
  Serious: Yes (Hospitalization, Other)
  Sender: FDA-Public Use
  Company Number: 2005-04-1739

PATIENT
  Age: 52 Year
  Sex: Female
  Weight: 55 kg

DRUGS (4)
  1. TEMODAL [Suspect]
     Indication: EPENDYMOMA
     Dosage: 3SEE IMAGE
     Route: 048
     Dates: start: 20041120, end: 20041124
  2. TEMODAL [Suspect]
     Indication: EPENDYMOMA
     Dosage: 3SEE IMAGE
     Route: 048
     Dates: end: 20041124
  3. SOLU-MEDROL [Concomitant]
  4. OMEPRAZOLE [Concomitant]

REACTIONS (4)
  - CONSTIPATION [None]
  - GASTROINTESTINAL DISORDER [None]
  - OBSTRUCTION [None]
  - VOMITING [None]
